FAERS Safety Report 25093887 (Version 1)
Quarter: 2025Q1

REPORT INFORMATION
  Report Type: Spontaneous
  Country: US (occurrence: US)
  Receive Date: 20250319
  Receipt Date: 20250319
  Transmission Date: 20250408
  Serious: Yes (Other)
  Sender: MYLAN
  Company Number: US-MYLANLABS-2025M1021182

PATIENT

DRUGS (2)
  1. PROPRANOLOL [Suspect]
     Active Substance: PROPRANOLOL HYDROCHLORIDE
     Indication: Supraventricular tachycardia
  2. ATENOLOL [Suspect]
     Active Substance: ATENOLOL
     Indication: Supraventricular tachycardia

REACTIONS (2)
  - Treatment failure [Unknown]
  - Off label use [Unknown]
